FAERS Safety Report 9805471 (Version 1)
Quarter: 2014Q1

REPORT INFORMATION
  Report Type: Spontaneous
  Country: US (occurrence: None)
  Receive Date: 20140108
  Receipt Date: 20140108
  Transmission Date: 20141002
  Serious: No
  Sender: FDA-Public Use
  Company Number: None

PATIENT
  Age: 22 Year
  Sex: Female
  Weight: 54.43 kg

DRUGS (1)
  1. REGLAN [Suspect]
     Indication: MIGRAINE
     Route: 042

REACTIONS (4)
  - Panic reaction [None]
  - Restlessness [None]
  - Muscle twitching [None]
  - Joint contracture [None]
